FAERS Safety Report 4860141-1 (Version None)
Quarter: 2005Q4

REPORT INFORMATION
  Report Type: 
  Country: None (occurrence: None)
  Receive Date: 20051219
  Receipt Date: 20050829
  Transmission Date: 20060501
  Serious: Yes (Hospitalization, Other)
  Sender: FDA-Public Use
  Company Number: US-MERCK-0508USA04790

PATIENT
  Age: 83 Year
  Sex: Female
  Weight: 77 kg

DRUGS (5)
  1. VIOXX [Suspect]
     Indication: BACK PAIN
     Route: 048
     Dates: start: 19990521, end: 20040701
  2. VIOXX [Suspect]
     Route: 048
     Dates: start: 19990521, end: 20040701
  3. VIOXX [Suspect]
     Indication: MONARTHRITIS
     Route: 048
     Dates: start: 19990521, end: 20040701
  4. VIOXX [Suspect]
     Route: 048
     Dates: start: 19990521, end: 20040701
  5. TYLENOL [Concomitant]
     Route: 065

REACTIONS (5)
  - CAROTID ARTERY DISEASE [None]
  - CEREBROVASCULAR ACCIDENT [None]
  - EYE DISORDER [None]
  - KNEE ARTHROPLASTY [None]
  - RENAL DISORDER [None]
